FAERS Safety Report 7632690-4 (Version None)
Quarter: 2011Q3

REPORT INFORMATION
  Report Type: 
  Country: None (occurrence: None)
  Receive Date: 20110725
  Receipt Date: 20101207
  Transmission Date: 20111222
  Serious: No
  Sender: FDA-Public Use
  Company Number: US-BRISTOL-MYERS SQUIBB COMPANY-15416084

PATIENT
  Age: 75 Year
  Sex: Female
  Weight: 63 kg

DRUGS (6)
  1. FERROUS SULFATE TAB [Concomitant]
  2. ALENDRONATE SODIUM [Concomitant]
  3. FOSAMAX [Concomitant]
     Indication: OSTEOPOROSIS
  4. COUMADIN [Suspect]
     Dosage: 1DF=3TB ON SUNDAY + WED., 2TB ON ALL OTHER DAYS WEEK. WARFARIN SODIUM TAKING 2MG SINCE FEB-2010.
     Dates: start: 20100201
  5. RED YEAST RICE [Concomitant]
     Indication: BLOOD CHOLESTEROL INCREASED
  6. CALCIUM + VITAMIN D [Concomitant]

REACTIONS (4)
  - PRURITUS GENERALISED [None]
  - BURNING SENSATION [None]
  - FEELING HOT [None]
  - HYPERHIDROSIS [None]
